FAERS Safety Report 10619027 (Version 1)
Quarter: 2014Q4

REPORT INFORMATION
  Report Type: Spontaneous
  Country: IT (occurrence: None)
  Receive Date: 20141126
  Receipt Date: 20141126
  Transmission Date: 20150529
  Serious: Yes (Other)
  Sender: FDA-Public Use
  Company Number: 2014SEB00050

PATIENT
  Age: 17 Month
  Sex: Female

DRUGS (4)
  1. HYDROCORTISONE. [Suspect]
     Active Substance: HYDROCORTISONE
     Indication: ADRENAL INSUFFICIENCY
  2. SODIUM CHLORIDE (SODIUM CHLORIDE) [Concomitant]
     Active Substance: SODIUM CHLORIDE
  3. MACROGOL 3350 [Suspect]
     Active Substance: POLYETHYLENE GLYCOL 3350
     Indication: CONSTIPATION
  4. FLUCORTISONE (FLUCORTISONE) [Concomitant]

REACTIONS (2)
  - Drug interaction [None]
  - Adrenocortical insufficiency acute [None]
